FAERS Safety Report 24902830 (Version 1)
Quarter: 2025Q1

REPORT INFORMATION
  Report Type: Spontaneous
  Country: CA (occurrence: CA)
  Receive Date: 20250130
  Receipt Date: 20250130
  Transmission Date: 20250408
  Serious: Yes (Other)
  Sender: CSL BEHRING
  Company Number: CA-BEH-2025193288

PATIENT
  Age: 83 Year
  Sex: Female

DRUGS (32)
  1. HUMAN IMMUNOGLOBULIN G [Suspect]
     Active Substance: HUMAN IMMUNOGLOBULIN G
     Indication: Secondary immunodeficiency
     Dosage: 13 G, QW
     Route: 058
  2. ACTEMRA [Concomitant]
     Active Substance: TOCILIZUMAB
     Indication: Product used for unknown indication
  3. ACTEMRA [Concomitant]
     Active Substance: TOCILIZUMAB
     Indication: Product used for unknown indication
  4. CALCIUM [Concomitant]
     Active Substance: CALCIUM
     Indication: Product used for unknown indication
  5. CALCIUM [Concomitant]
     Active Substance: CALCIUM
     Indication: Product used for unknown indication
  6. CANNABIS SATIVA FLOWERING TOP [Concomitant]
     Active Substance: CANNABIS SATIVA FLOWERING TOP
     Indication: Product used for unknown indication
  7. CANNABIS SATIVA FLOWERING TOP [Concomitant]
     Active Substance: CANNABIS SATIVA FLOWERING TOP
     Indication: Product used for unknown indication
  8. PERINDOPRIL [Concomitant]
     Active Substance: PERINDOPRIL
     Indication: Product used for unknown indication
  9. PERINDOPRIL [Concomitant]
     Active Substance: PERINDOPRIL
     Indication: Product used for unknown indication
  10. LEVOTHYROXINE [Concomitant]
     Active Substance: LEVOTHYROXINE
     Indication: Product used for unknown indication
  11. LEVOTHYROXINE [Concomitant]
     Active Substance: LEVOTHYROXINE
     Indication: Product used for unknown indication
  12. HALIBUT-LIVER OIL [Concomitant]
     Indication: Product used for unknown indication
  13. HALIBUT-LIVER OIL [Concomitant]
     Indication: Product used for unknown indication
  14. HYDROMORPHONE [Concomitant]
     Active Substance: HYDROMORPHONE
     Indication: Product used for unknown indication
  15. HYDROMORPHONE [Concomitant]
     Active Substance: HYDROMORPHONE
     Indication: Product used for unknown indication
  16. LYRICA [Concomitant]
     Active Substance: PREGABALIN
     Indication: Product used for unknown indication
  17. LYRICA [Concomitant]
     Active Substance: PREGABALIN
     Indication: Product used for unknown indication
  18. POTASSIUM [Concomitant]
     Active Substance: POTASSIUM
     Indication: Product used for unknown indication
  19. POTASSIUM [Concomitant]
     Active Substance: POTASSIUM
     Indication: Product used for unknown indication
  20. PREMARIN [Concomitant]
     Active Substance: ESTROGENS, CONJUGATED
     Indication: Product used for unknown indication
  21. PREMARIN [Concomitant]
     Active Substance: ESTROGENS, CONJUGATED
     Indication: Product used for unknown indication
  22. PROLIA [Concomitant]
     Active Substance: DENOSUMAB
     Indication: Product used for unknown indication
  23. PROLIA [Concomitant]
     Active Substance: DENOSUMAB
     Indication: Product used for unknown indication
  24. FISH OIL [Concomitant]
     Active Substance: FISH OIL
     Indication: Product used for unknown indication
  25. FISH OIL [Concomitant]
     Active Substance: FISH OIL
     Indication: Product used for unknown indication
  26. PANTOPRAZOLE MAGNESIUM [Concomitant]
     Active Substance: PANTOPRAZOLE MAGNESIUM
     Indication: Product used for unknown indication
     Route: 065
  27. VITAMIN C [Concomitant]
     Active Substance: ASCORBIC ACID
     Indication: Product used for unknown indication
  28. VITAMIN C [Concomitant]
     Active Substance: ASCORBIC ACID
     Indication: Product used for unknown indication
  29. VITAMIN D [Concomitant]
     Active Substance: VITAMIN D NOS
     Indication: Product used for unknown indication
  30. VITAMIN D [Concomitant]
     Active Substance: VITAMIN D NOS
     Indication: Product used for unknown indication
  31. VITAMINS NOS [Concomitant]
     Active Substance: VITAMINS
     Indication: Product used for unknown indication
  32. VITAMINS NOS [Concomitant]
     Active Substance: VITAMINS
     Indication: Product used for unknown indication

REACTIONS (6)
  - Alanine aminotransferase increased [Unknown]
  - Blood alkaline phosphatase increased [Unknown]
  - Osteomyelitis [Unknown]
  - Pustule [Unknown]
  - Therapy interrupted [Unknown]
  - Off label use [Unknown]
